FAERS Safety Report 9216813 (Version 1)
Quarter: 2013Q2

REPORT INFORMATION
  Report Type: Spontaneous
  Country: US (occurrence: US)
  Receive Date: 20130408
  Receipt Date: 20130408
  Transmission Date: 20140414
  Serious: Yes (Hospitalization, Other)
  Sender: FDA-Public Use
  Company Number: US-PFIZER INC-2013108911

PATIENT
  Age: 63 Year
  Sex: Male
  Weight: 94.33 kg

DRUGS (8)
  1. CHANTIX [Suspect]
     Indication: SMOKING CESSATION THERAPY
     Dosage: UNK
     Route: 048
  2. CHANTIX [Suspect]
     Dosage: 1 MG, 2X/DAY
     Route: 048
     Dates: start: 201208, end: 201208
  3. AMLODIPINE [Concomitant]
     Dosage: 25 MG, UNK
  4. LISINOPRIL [Concomitant]
     Dosage: 20 MG, UNK
  5. FLOMAX [Concomitant]
     Indication: RENAL DISORDER
     Dosage: 25 MG, UNK
  6. FLOMAX [Concomitant]
     Indication: PROSTATOMEGALY
  7. SERTRALINE [Concomitant]
     Indication: DEPRESSION
     Dosage: 50 MG, UNK
  8. VITAMIN D [Concomitant]
     Dosage: 5000 UNITS, 2X/DAY

REACTIONS (5)
  - Pneumonia [Recovered/Resolved]
  - Arterial occlusive disease [Unknown]
  - Drug prescribing error [Unknown]
  - Incorrect dose administered [Unknown]
  - Drug ineffective [Unknown]
